FAERS Safety Report 25384736 (Version 5)
Quarter: 2025Q3

REPORT INFORMATION
  Report Type: Spontaneous
  Country: US (occurrence: US)
  Receive Date: 20250602
  Receipt Date: 20250708
  Transmission Date: 20251021
  Serious: No
  Sender: PFIZER
  Company Number: US-PFIZER INC-202500109829

PATIENT
  Age: 16 Year
  Sex: Male

DRUGS (3)
  1. GENOTROPIN [Suspect]
     Active Substance: SOMATROPIN
     Indication: Hypopituitarism
     Dosage: 2.4 MG, DAILY (7 DAYS/WEEK)
     Dates: start: 20250525
  2. GENOTROPIN [Suspect]
     Active Substance: SOMATROPIN
     Indication: Growth hormone deficiency
     Dosage: 2 MG, DAILY
  3. NORDITROPIN [Concomitant]
     Active Substance: SOMATROPIN

REACTIONS (3)
  - Overdose [Unknown]
  - Device delivery system issue [Unknown]
  - Product deposit [Unknown]

NARRATIVE: CASE EVENT DATE: 20250525
